FAERS Safety Report 9055399 (Version 1)
Quarter: 2013Q1

REPORT INFORMATION
  Report Type: Spontaneous
  Country: US (occurrence: US)
  Receive Date: 20130206
  Receipt Date: 20130206
  Transmission Date: 20140127
  Serious: Yes (Hospitalization)
  Sender: FDA-Public Use
  Company Number: US-BAYER-2013-012896

PATIENT
  Age: 31 Year
  Sex: Female

DRUGS (17)
  1. YAZ [Suspect]
  2. RISPERDAL [Concomitant]
     Dosage: 0.25 MG, UNK
     Route: 048
     Dates: start: 20050829, end: 20080403
  3. ABILIFY [Concomitant]
     Dosage: 5 MG, UNK
     Route: 048
     Dates: start: 20080320, end: 20080407
  4. TIZANIDINE [Concomitant]
     Dosage: 2 MG, UNK
     Route: 048
     Dates: start: 20050715, end: 20101207
  5. OXYCODONE/APAP [Concomitant]
     Dosage: UNK
     Route: 048
     Dates: start: 20060105, end: 20120504
  6. ONDANSETRON [Concomitant]
     Dosage: 4 MG, UNK
     Route: 048
     Dates: start: 20070910, end: 20111110
  7. PREDNISONE [Concomitant]
     Dosage: 20 MG, UNK
     Route: 048
     Dates: start: 20051128, end: 20100420
  8. CIPROFLOXACIN [Concomitant]
     Dosage: 500 MG, UNK
     Route: 048
     Dates: start: 20080417, end: 20080422
  9. TOPAMAX [Concomitant]
     Dosage: 100 MG, UNK
     Route: 048
     Dates: start: 20050702, end: 20080527
  10. FEXOFENADINE [Concomitant]
     Dosage: 100 MG, UNK
     Route: 048
     Dates: start: 20071224, end: 20110413
  11. PANTOPRAZOLE [Concomitant]
     Dosage: 40 MG, UNK
     Route: 048
     Dates: start: 20080129, end: 20100316
  12. ADVAIR [Concomitant]
     Dosage: 100-50 DISKUS
     Dates: start: 20060404, end: 20100910
  13. SEROQUEL [Concomitant]
     Dosage: 200 MG, UNK
     Route: 048
     Dates: start: 20050712, end: 20110505
  14. ALBUTEROL [Concomitant]
     Dosage: 90 ?G, UNK
     Dates: start: 20051218, end: 20100127
  15. LAMICTAL [Concomitant]
     Dosage: 100 MG, UNK
     Route: 048
     Dates: start: 20051016, end: 20080606
  16. CLONAZEPAM [Concomitant]
     Dosage: 0.5 MG, UNK
     Route: 048
     Dates: start: 20050907, end: 20100622
  17. METHYLPREDNISOLONE [Concomitant]
     Dosage: 4 MG, UNK
     Route: 048
     Dates: start: 20080620

REACTIONS (2)
  - Pulmonary embolism [None]
  - Deep vein thrombosis [Recovered/Resolved]
